FAERS Safety Report 12223110 (Version 2)
Quarter: 2016Q3

REPORT INFORMATION
  Report Type: Spontaneous
  Country: US (occurrence: US)
  Receive Date: 20160330
  Receipt Date: 20160727
  Transmission Date: 20161109
  Serious: Yes (Hospitalization, Other)
  Sender: FDA-Public Use
  Company Number: US-ALEXION PHARMACEUTICALS INC-A201602088

PATIENT
  Sex: Female

DRUGS (1)
  1. SOLIRIS [Suspect]
     Active Substance: ECULIZUMAB
     Indication: PAROXYSMAL NOCTURNAL HAEMOGLOBINURIA
     Dosage: 900 MG, Q2W
     Route: 042
     Dates: start: 20100610, end: 20160706

REACTIONS (9)
  - Pneumonia [Not Recovered/Not Resolved]
  - Pain in extremity [Unknown]
  - Medication error [Unknown]
  - Lung disorder [Unknown]
  - Electrocardiogram abnormal [Unknown]
  - Fatigue [Unknown]
  - Initial insomnia [Unknown]
  - Infusion site swelling [Recovering/Resolving]
  - Arthralgia [Unknown]

NARRATIVE: CASE EVENT DATE: 201603
